FAERS Safety Report 9700709 (Version 3)
Quarter: 2014Q1

REPORT INFORMATION
  Report Type: Spontaneous
  Country: BR (occurrence: BR)
  Receive Date: 20131121
  Receipt Date: 20140127
  Transmission Date: 20141002
  Serious: Yes (Disabling)
  Sender: FDA-Public Use
  Company Number: BR-ROCHE-1304503

PATIENT
  Sex: Female
  Weight: 48 kg

DRUGS (5)
  1. XELODA [Suspect]
     Indication: HEPATIC NEOPLASM
     Route: 065
  2. XELODA [Suspect]
     Route: 065
  3. VITAMIN D3 [Concomitant]
     Indication: METASTASES TO BONE
  4. AMITRIPTYLINE [Concomitant]
     Route: 065
  5. ZOMETA [Concomitant]
     Indication: CHEMOTHERAPY
     Route: 065

REACTIONS (5)
  - Local swelling [Recovering/Resolving]
  - Erythema [Recovering/Resolving]
  - Skin fissures [Recovering/Resolving]
  - Skin hypertrophy [Recovering/Resolving]
  - Asthenia [Recovered/Resolved]
